FAERS Safety Report 9813931 (Version 3)
Quarter: 2014Q2

REPORT INFORMATION
  Report Type: Spontaneous
  Country: US (occurrence: US)
  Receive Date: 20140113
  Receipt Date: 20140519
  Transmission Date: 20141212
  Serious: Yes (Hospitalization)
  Sender: FDA-Public Use
  Company Number: US-B.I. PHARMACEUTICALS,INC./RIDGEFIELD-2014-BI-00426BP

PATIENT
  Age: 78 Year
  Sex: Male
  Weight: 69.4 kg

DRUGS (9)
  1. PRADAXA [Suspect]
     Indication: ATRIAL FIBRILLATION
     Dosage: 300 MG
     Route: 048
     Dates: start: 20110801, end: 201111
  2. COREG [Concomitant]
     Route: 065
     Dates: start: 2000
  3. LISINOPRIL [Concomitant]
     Route: 065
     Dates: start: 2000
  4. ZETIA [Concomitant]
     Route: 065
     Dates: start: 2000, end: 2011
  5. IMDUR [Concomitant]
     Route: 065
     Dates: start: 2000
  6. HCTZ [Concomitant]
     Route: 065
     Dates: start: 2000
  7. ASPIRIN [Concomitant]
     Route: 065
  8. ATACAND [Concomitant]
     Route: 065
  9. SIMVASTATIN [Concomitant]
     Route: 065

REACTIONS (4)
  - Cerebral haemorrhage [Unknown]
  - Gastrointestinal haemorrhage [Unknown]
  - Ischaemic stroke [Unknown]
  - Anaemia [Unknown]
